FAERS Safety Report 9664763 (Version 1)
Quarter: 2013Q4

REPORT INFORMATION
  Report Type: Spontaneous
  Country: TW (occurrence: None)
  Receive Date: 20131031
  Receipt Date: 20131031
  Transmission Date: 20140711
  Serious: Yes (Other)
  Sender: FDA-Public Use
  Company Number: FK201304770

PATIENT
  Age: 54 Year
  Sex: Female

DRUGS (4)
  1. IFOSFAMIDE [Suspect]
     Indication: UTERINE CANCER
  2. IFOSFAMIDE [Suspect]
     Indication: METASTASES TO LUNG
  3. PACLITAXEL (MANUFACTURER UNKNOWN) (PACLITAXEL) (PACLITAXEL) [Suspect]
     Indication: UTERINE CANCER
  4. PACLITAXEL (MANUFACTURER UNKNOWN) (PACLITAXEL) (PACLITAXEL) [Suspect]
     Indication: METASTASES TO LUNG

REACTIONS (2)
  - Neutropenic sepsis [None]
  - Nail disorder [None]
